FAERS Safety Report 8789614 (Version 1)
Quarter: 2012Q4

REPORT INFORMATION
  Report Type: Spontaneous
  Country: US (occurrence: None)
  Receive Date: 20120910
  Receipt Date: 20120910
  Transmission Date: 20130627
  Serious: Yes (Hospitalization, Other)
  Sender: FDA-Public Use
  Company Number: None

PATIENT
  Age: 9 Year
  Sex: Female
  Weight: 34.02 kg

DRUGS (1)
  1. ETHOSUXIMIDE [Suspect]
     Indication: ABSENCE SEIZURE
     Route: 048
     Dates: start: 200810, end: 20120613

REACTIONS (5)
  - Joint swelling [None]
  - Pyrexia [None]
  - White blood cell count decreased [None]
  - Platelet count decreased [None]
  - Leukaemia [None]
